FAERS Safety Report 16068001 (Version 1)
Quarter: 2019Q1

REPORT INFORMATION
  Report Type: Report from Study
  Country: GB (occurrence: GB)
  Receive Date: 20190313
  Receipt Date: 20190313
  Transmission Date: 20190418
  Serious: Yes (Hospitalization)
  Sender: FDA-Public Use
  Company Number: GB-IPSEN BIOPHARMACEUTICALS, INC.-2019-03670

PATIENT
  Age: 68 Year
  Sex: Male

DRUGS (2)
  1. FLUOROURACIL. [Suspect]
     Active Substance: FLUOROURACIL
     Indication: NEUROENDOCRINE CARCINOMA
     Route: 042
     Dates: start: 20181126, end: 20190215
  2. IRINOTECAN LIPOSOME INJECTION [Suspect]
     Active Substance: IRINOTECAN HYDROCHLORIDE
     Indication: NEUROENDOCRINE CARCINOMA
     Route: 042
     Dates: start: 20181126, end: 20190215

REACTIONS (1)
  - Acute kidney injury [Recovered/Resolved]

NARRATIVE: CASE EVENT DATE: 20190301
